FAERS Safety Report 8818716 (Version 3)
Quarter: 2012Q4

REPORT INFORMATION
  Report Type: 
  Country: US (occurrence: US)
  Receive Date: 20121001
  Receipt Date: 20121119
  Transmission Date: 20130627
  Serious: No
  Sender: FDA-Public Use
  Company Number: US-ROXANE LABORATORIES, INC.-2012-RO-01899RO

PATIENT
  Sex: Male
  Weight: 82 kg

DRUGS (3)
  1. TRIAZOLAM [Suspect]
     Indication: SLEEP DISORDER
  2. LIPITOR [Suspect]
  3. PRINIVIL [Concomitant]

REACTIONS (1)
  - Headache [Recovered/Resolved]
